FAERS Safety Report 14753418 (Version 4)
Quarter: 2019Q4

REPORT INFORMATION
  Report Type: Report from Study
  Country: US (occurrence: US)
  Receive Date: 20180412
  Receipt Date: 20191211
  Transmission Date: 20200122
  Serious: Yes (Hospitalization)
  Sender: FDA-Public Use
  Company Number: US-EISAI MEDICAL RESEARCH-EC-2018-037545

PATIENT
  Sex: Male
  Weight: 108.86 kg

DRUGS (20)
  1. AMLODIPINE BESYLATE. [Concomitant]
     Active Substance: AMLODIPINE BESYLATE
  2. FLUZONE [Concomitant]
     Active Substance: INFLUENZA A VIRUS A/CALIFORNIA/7/2009 X-179A (H1N1) ANTIGEN (FORMALDEHYDE INACTIVATED)\INFLUENZA A VIRUS A/VICTORIA/210/2009 X-187 (H3N2) ANTIGEN (FORMALDEHYDE INACTIVATED)\INFLUENZA B VIRUS B/BRISBANE/60/2008 ANTIGEN (FORMALDEHYDE INACTIVATED)
  3. CEFUROXIME. [Concomitant]
     Active Substance: CEFUROXIME
  4. WARFARIN SODIUM. [Concomitant]
     Active Substance: WARFARIN SODIUM
  5. SIMPLY SALINE 0.9 % [Concomitant]
  6. METOCLOPRAMIDE. [Concomitant]
     Active Substance: METOCLOPRAMIDE
  7. AFINITOR [Suspect]
     Active Substance: EVEROLIMUS
     Indication: RENAL CANCER
     Route: 048
     Dates: end: 201804
  8. LENVIMA [Suspect]
     Active Substance: LENVATINIB
     Indication: RENAL CANCER
     Route: 048
     Dates: start: 20180313, end: 201804
  9. VOTRIENT [Concomitant]
     Active Substance: PAZOPANIB HYDROCHLORIDE
  10. LENVIMA [Suspect]
     Active Substance: LENVATINIB
     Route: 048
     Dates: start: 2019, end: 2019
  11. PROCHLORPERAZINE MALEA [Concomitant]
  12. FAMOTIDINE. [Concomitant]
     Active Substance: FAMOTIDINE
  13. LENVIMA [Suspect]
     Active Substance: LENVATINIB
     Route: 048
     Dates: start: 2018, end: 20181015
  14. LEVOTHYROXINE. [Concomitant]
     Active Substance: LEVOTHYROXINE
  15. PREDNISONE. [Concomitant]
     Active Substance: PREDNISONE
  16. ONDANSETRON [Concomitant]
     Active Substance: ONDANSETRON
  17. METOPROLOL TARTRATE. [Concomitant]
     Active Substance: METOPROLOL TARTRATE
  18. CIPROFLOXACIN. [Concomitant]
     Active Substance: CIPROFLOXACIN
  19. DOXYCYCLINE. [Concomitant]
     Active Substance: DOXYCYCLINE
  20. PAROXETINE. [Concomitant]
     Active Substance: PAROXETINE

REACTIONS (7)
  - Proteinuria [Unknown]
  - Decreased appetite [Unknown]
  - Urinary tract infection [Unknown]
  - Weight decreased [Unknown]
  - Fatigue [Unknown]
  - Nasopharyngitis [Unknown]
  - Blood pressure abnormal [Unknown]

NARRATIVE: CASE EVENT DATE: 2018
